FAERS Safety Report 7470518-6 (Version None)
Quarter: 2011Q2

REPORT INFORMATION
  Report Type: 
  Country: None (occurrence: None)
  Receive Date: 20110510
  Receipt Date: 20110427
  Transmission Date: 20111010
  Serious: Yes (Hospitalization)
  Sender: FDA-Public Use
  Company Number: US-JNJFOC-20101208302

PATIENT
  Sex: Female
  Weight: 91.16 kg

DRUGS (12)
  1. CALCIUM [Concomitant]
  2. ZYRTEC [Concomitant]
  3. NORVASC [Concomitant]
  4. BENAZEPRIL HYDROCHLORIDE [Concomitant]
  5. GLUCOTROL [Concomitant]
  6. METFORMIN HCL [Concomitant]
  7. CENTRUM MULTIVITAMINS [Concomitant]
  8. ALBUTEROL [Concomitant]
  9. IBUPROFEN [Suspect]
     Indication: ARTHRITIS
     Route: 048
  10. CLONIDINE [Concomitant]
  11. LOTREL [Concomitant]
  12. FUROSEMIDE [Concomitant]

REACTIONS (3)
  - COLONIC POLYP [None]
  - COLECTOMY [None]
  - GASTROINTESTINAL HAEMORRHAGE [None]
